FAERS Safety Report 23188637 (Version 1)
Quarter: 2023Q4

REPORT INFORMATION
  Report Type: Spontaneous
  Country: US (occurrence: US)
  Receive Date: 20231115
  Receipt Date: 20231115
  Transmission Date: 20240110
  Serious: No
  Sender: FDA-Public Use
  Company Number: US-PFIZER INC-202300359649

PATIENT
  Age: 6 Year
  Sex: Female

DRUGS (1)
  1. OXBRYTA [Suspect]
     Active Substance: VOXELOTOR
     Dosage: 300MG, 4 TABLETS FOR ORAL SUSPENSION ONCE DAILY
     Route: 048
     Dates: start: 2022

REACTIONS (5)
  - Retching [Unknown]
  - Vomiting [Unknown]
  - Crying [Unknown]
  - Product preparation issue [Unknown]
  - Product dose omission issue [Unknown]

NARRATIVE: CASE EVENT DATE: 20231101
